FAERS Safety Report 4400485-0 (Version None)
Quarter: 2004Q3

REPORT INFORMATION
  Report Type: 
  Country: None (occurrence: None)
  Receive Date: 20040719
  Receipt Date: 20040707
  Transmission Date: 20050211
  Serious: Yes (Other)
  Sender: FDA-Public Use
  Company Number: US-BRISTOL-MYERS SQUIBB COMPANY-12634861

PATIENT
  Age: 4 Year
  Sex: Male
  Weight: 17 kg

DRUGS (6)
  1. ATAZANAVIR [Suspect]
     Indication: HIV INFECTION
     Dates: start: 20040422
  2. RITONAVIR [Suspect]
     Indication: HIV INFECTION
     Dates: start: 20040422
  3. EPIVIR [Concomitant]
  4. ZERIT [Concomitant]
  5. IRON [Concomitant]
  6. SEPTRA [Concomitant]

REACTIONS (1)
  - BILIRUBIN CONJUGATED INCREASED [None]
